FAERS Safety Report 18851497 (Version 1)
Quarter: 2021Q1

REPORT INFORMATION
  Report Type: Spontaneous
  Country: JP (occurrence: JP)
  Receive Date: 20210205
  Receipt Date: 20210205
  Transmission Date: 20210420
  Serious: No
  Sender: FDA-Public Use
  Company Number: JP-LUPIN PHARMACEUTICALS INC.-2021-00963

PATIENT
  Age: 37 Year
  Sex: Female

DRUGS (5)
  1. PREDNISOLONE. [Suspect]
     Active Substance: PREDNISOLONE
     Indication: BEHCET^S SYNDROME
     Dosage: 25 MILLIGRAM, QD, RECEIVED A CUMULATIVE DOSE PF 1929G OF PREDNISOLONE OVER 105DAYS TILL DELIVERY
     Route: 065
  2. METHYLPREDNISOLONE. [Suspect]
     Active Substance: METHYLPREDNISOLONE
     Indication: BEHCET^S SYNDROME
     Dosage: 1000 MILLIGRAM, QD
     Route: 065
  3. PREDNISOLONE. [Suspect]
     Active Substance: PREDNISOLONE
     Dosage: 18 MILLIGRAM, QD, RECEIVED A CUMULATIVE DOSE PF 1929G OF PREDNISOLONE OVER 105DAYS TILL DELIVERY
     Route: 065
  4. PREDNISOLONE. [Suspect]
     Active Substance: PREDNISOLONE
     Dosage: 14 MILLIGRAM, QD, RECEIVED A CUMULATIVE DOSE PF 1929G OF PREDNISOLONE OVER 105DAYS TILL DELIVERY
     Route: 065
  5. PREDNISOLONE. [Suspect]
     Active Substance: PREDNISOLONE
     Dosage: 20 MILLIGRAM, QD, RECEIVED A CUMULATIVE DOSE PF 1929G OF PREDNISOLONE OVER 105DAYS TILL DELIVERY
     Route: 065

REACTIONS (2)
  - Exposure during pregnancy [Unknown]
  - Normal newborn [Unknown]
